FAERS Safety Report 5847606-0 (Version None)
Quarter: 2008Q3

REPORT INFORMATION
  Report Type: 
  Country: None (occurrence: None)
  Receive Date: 20080815
  Receipt Date: 20080815
  Transmission Date: 20090109
  Serious: Yes (Other)
  Sender: FDA-Public Use
  Company Number: None

PATIENT
  Age: 68 Year
  Sex: Female
  Weight: 72.5755 kg

DRUGS (1)
  1. MICARDIS [Suspect]
     Indication: PROPHYLAXIS
     Dosage: 1 TAB ONCE A DAY AT NITE ONLY 1 DOSE
     Dates: start: 20080722

REACTIONS (1)
  - MUSCLE SPASMS [None]
